FAERS Safety Report 17848702 (Version 1)
Quarter: 2020Q2

REPORT INFORMATION
  Report Type: Report from Study
  Country: BR (occurrence: BR)
  Receive Date: 20200602
  Receipt Date: 20200602
  Transmission Date: 20200714
  Serious: Yes (Other)
  Sender: FDA-Public Use
  Company Number: PHHY2018BR075989

PATIENT
  Age: 75 Year
  Sex: Male
  Weight: 79 kg

DRUGS (5)
  1. COSENTYX [Suspect]
     Active Substance: SECUKINUMAB
     Dosage: 300 MG
     Route: 065
     Dates: start: 20180801
  2. COSENTYX [Suspect]
     Active Substance: SECUKINUMAB
     Dosage: 300 MG, QMO
     Route: 058
     Dates: start: 20181031, end: 201909
  3. COSENTYX [Suspect]
     Active Substance: SECUKINUMAB
     Indication: PSORIATIC ARTHROPATHY
     Dosage: 150 MG, QW (EVERY 7 DAYS) (INSTEAD OF 300 MG)
     Route: 065
     Dates: start: 20180801
  4. COSENTYX [Suspect]
     Active Substance: SECUKINUMAB
     Dosage: 300 MG, QW (EVERY 7 DAYS)
     Route: 065
  5. COSENTYX [Suspect]
     Active Substance: SECUKINUMAB
     Dosage: UNK
     Route: 058
     Dates: start: 20200509

REACTIONS (12)
  - Cataract [Not Recovered/Not Resolved]
  - Headache [Not Recovered/Not Resolved]
  - Wound [Not Recovered/Not Resolved]
  - Eye discharge [Not Recovered/Not Resolved]
  - Visual impairment [Not Recovered/Not Resolved]
  - Influenza [Unknown]
  - Epistaxis [Recovered/Resolved]
  - Eye pain [Not Recovered/Not Resolved]
  - Incorrect dose administered [Recovered/Resolved]
  - Cough [Recovering/Resolving]
  - Psoriasis [Not Recovered/Not Resolved]
  - Inappropriate schedule of product administration [Unknown]

NARRATIVE: CASE EVENT DATE: 20180801
